FAERS Safety Report 17227308 (Version 1)
Quarter: 2020Q1

REPORT INFORMATION
  Report Type: Report from Study
  Country: None (occurrence: ES)
  Receive Date: 20200103
  Receipt Date: 20200103
  Transmission Date: 20200409
  Serious: Yes (Death)
  Sender: FDA-Public Use
  Company Number: ES-BAUSCH-BL-2019-066911

PATIENT
  Age: 38 Year
  Sex: Male

DRUGS (1)
  1. VENLAFAXINE [Suspect]
     Active Substance: VENLAFAXINE HYDROCHLORIDE
     Indication: PRODUCT USED FOR UNKNOWN INDICATION
     Route: 065

REACTIONS (6)
  - Cardiac hypertrophy [Fatal]
  - Toxicity to various agents [Fatal]
  - Myocardial fibrosis [Fatal]
  - Left ventricular hypertrophy [Fatal]
  - Arteriosclerosis [Fatal]
  - Right ventricular dilatation [Fatal]
